FAERS Safety Report 7001018-5 (Version None)
Quarter: 2010Q3

REPORT INFORMATION
  Report Type: 
  Country: None (occurrence: None)
  Receive Date: 20100920
  Receipt Date: 20070612
  Transmission Date: 20110219
  Serious: Yes (Other)
  Sender: FDA-Public Use
  Company Number: US-ASTRAZENECA-2006UW20858

PATIENT
  Sex: Male
  Weight: 68 kg

DRUGS (14)
  1. SEROQUEL [Suspect]
     Indication: BIPOLAR DISORDER
     Route: 048
     Dates: start: 20050622
  2. SEROQUEL [Suspect]
     Route: 048
  3. HALDOL [Concomitant]
  4. NAVANE [Concomitant]
  5. RISPERDAL [Concomitant]
  6. THORAZINE [Concomitant]
  7. TRILAFON [Concomitant]
  8. ZYPREXA [Concomitant]
  9. DEPAKOTE [Concomitant]
     Dates: start: 20050622
  10. CLONAZEPAM [Concomitant]
     Dates: start: 20050927
  11. ZOLOFT [Concomitant]
     Dates: start: 20051017
  12. TRAMADOL [Concomitant]
     Dates: start: 20061021
  13. TRILEPTAL [Concomitant]
     Dates: start: 20070209
  14. FLUPHENAZINE [Concomitant]
     Dates: start: 20060208

REACTIONS (2)
  - DIABETES MELLITUS [None]
  - PANCREATITIS [None]
